FAERS Safety Report 18400315 (Version 1)
Quarter: 2020Q4

REPORT INFORMATION
  Report Type: Spontaneous
  Country: US (occurrence: US)
  Receive Date: 20201019
  Receipt Date: 20201019
  Transmission Date: 20210114
  Serious: Yes (Other)
  Sender: FDA-Public Use
  Company Number: US-ALLERGAN-2034605US

PATIENT
  Sex: Male

DRUGS (1)
  1. VRAYLAR [Suspect]
     Active Substance: CARIPRAZINE
     Indication: PRODUCT USED FOR UNKNOWN INDICATION
     Dosage: TITRATED TO 3 MG
     Route: 048
     Dates: start: 2020, end: 2020

REACTIONS (2)
  - Suicidal ideation [Unknown]
  - Mania [Unknown]

NARRATIVE: CASE EVENT DATE: 2020
